FAERS Safety Report 12334993 (Version 1)
Quarter: 2016Q2

REPORT INFORMATION
  Report Type: Spontaneous
  Country: SI (occurrence: SI)
  Receive Date: 20160504
  Receipt Date: 20160504
  Transmission Date: 20160815
  Serious: Yes (Other)
  Sender: FDA-Public Use
  Company Number: SI-009507513-1605SVN002223

PATIENT
  Sex: Female

DRUGS (3)
  1. INTRON A [Suspect]
     Active Substance: INTERFERON ALFA-2B
     Dosage: 15 MILLION IU 3 X WEEKLY, FOR 35 WEEKS.
     Route: 058
  2. INTRON A [Suspect]
     Active Substance: INTERFERON ALFA-2B
     Dosage: 30 MILLION IU 20 X IN 4 WEEKS
     Route: 042
  3. INTRON A [Suspect]
     Active Substance: INTERFERON ALFA-2B
     Dosage: 10 MILLION IU 3 X WEEKLY FOR 12 WEEKS
     Route: 058
     Dates: end: 201201

REACTIONS (1)
  - Metastatic malignant melanoma [Recovered/Resolved]
